FAERS Safety Report 17623303 (Version 1)
Quarter: 2020Q2

REPORT INFORMATION
  Report Type: Report from Study
  Country: GB (occurrence: GB)
  Receive Date: 20200403
  Receipt Date: 20200403
  Transmission Date: 20200713
  Serious: Yes (Other)
  Sender: FDA-Public Use
  Company Number: GB-JNJFOC-20191111805

PATIENT
  Sex: Female
  Weight: 84 kg

DRUGS (4)
  1. DALTEPARIN [Concomitant]
     Active Substance: DALTEPARIN
  2. LACTULOSE. [Concomitant]
     Active Substance: LACTULOSE
  3. STELARA [Suspect]
     Active Substance: USTEKINUMAB
     Indication: CROHN^S DISEASE
     Route: 058
  4. PARACETAMOL [Concomitant]
     Active Substance: ACETAMINOPHEN

REACTIONS (5)
  - Chest pain [Unknown]
  - Crohn^s disease [Not Recovered/Not Resolved]
  - Product dose omission [Unknown]
  - Liver function test abnormal [Unknown]
  - Irritable bowel syndrome [Not Recovered/Not Resolved]
